FAERS Safety Report 9796559 (Version 3)
Quarter: 2014Q2

REPORT INFORMATION
  Report Type: Spontaneous
  Country: IT (occurrence: IT)
  Receive Date: 20140103
  Receipt Date: 20140411
  Transmission Date: 20141212
  Serious: Yes (Other)
  Sender: FDA-Public Use
  Company Number: IT-009507513-1401ITA000598

PATIENT
  Age: 52 Year
  Sex: Female

DRUGS (2)
  1. LOSAZID 50MG + 12,5MG COMPRESSE RIVESTITE CON FILM [Suspect]
     Indication: HYPERTENSION
     Dosage: UNK
     Route: 048
     Dates: start: 20131101
  2. LORTAAN 50 MG COMPRESSE RIVESTITE CON FILM [Suspect]
     Indication: HYPERTENSION
     Dosage: UNK
     Route: 048

REACTIONS (3)
  - Hypertensive crisis [Unknown]
  - Epistaxis [Unknown]
  - Dizziness [Unknown]
